FAERS Safety Report 7878713-9 (Version None)
Quarter: 2011Q4

REPORT INFORMATION
  Report Type: 
  Country: None (occurrence: None)
  Receive Date: 20111021
  Receipt Date: 20110725
  Transmission Date: 20120403
  Serious: No
  Sender: FDA-Public Use
  Company Number: US-005931

PATIENT
  Sex: Male

DRUGS (5)
  1. ZOMETA [Concomitant]
  2. MULTI-VITAMINS [Concomitant]
  3. DEGARELIX  240 MG [Suspect]
     Indication: PROSTATE CANCER
     Dosage: 240 MG SUBCUTANEOUS
     Route: 058
     Dates: start: 20110628, end: 20110628
  4. DOXYCYCLINE [Concomitant]
  5. FLOMAX [Concomitant]

REACTIONS (3)
  - URTICARIA [None]
  - RASH [None]
  - RASH PRURITIC [None]
